FAERS Safety Report 11856838 (Version 1)
Quarter: 2015Q4

REPORT INFORMATION
  Report Type: Spontaneous
  Country: US (occurrence: US)
  Receive Date: 20151221
  Receipt Date: 20151221
  Transmission Date: 20160305
  Serious: No
  Sender: FDA-Public Use
  Company Number: US-ASCEND THERAPEUTICS-1045726

PATIENT
  Sex: Female

DRUGS (1)
  1. ESTROGEL [Suspect]
     Active Substance: ESTRADIOL
     Indication: VULVOVAGINAL BURNING SENSATION
     Route: 062

REACTIONS (1)
  - Vulvovaginal burning sensation [Not Recovered/Not Resolved]
